FAERS Safety Report 10230572 (Version 1)
Quarter: 2014Q2

REPORT INFORMATION
  Report Type: Spontaneous
  Country: US (occurrence: US)
  Receive Date: 20140611
  Receipt Date: 20140611
  Transmission Date: 20141212
  Serious: No
  Sender: FDA-Public Use
  Company Number: US-INCYTE CORPORATION-2014IN001214

PATIENT
  Age: 78 Year
  Sex: Male

DRUGS (9)
  1. JAKAFI [Suspect]
     Indication: NIGHT SWEATS
     Dosage: 10 MG, BID
     Route: 048
     Dates: start: 2014
  2. JAKAFI [Suspect]
     Indication: INCREASED APPETITE
  3. JAKAFI [Suspect]
     Indication: QUALITY OF LIFE DECREASED
  4. LASIX                              /00032601/ [Concomitant]
  5. ALLOPURINOL [Concomitant]
  6. VALTREX [Concomitant]
  7. LORTAB                             /00607101/ [Concomitant]
  8. IBUPROFEN [Concomitant]
  9. DANAZOL [Concomitant]

REACTIONS (2)
  - Sleep disorder [Recovering/Resolving]
  - Transfusion [Recovering/Resolving]
